FAERS Safety Report 13477312 (Version 2)
Quarter: 2018Q1

REPORT INFORMATION
  Report Type: Other
  Country: IT (occurrence: IT)
  Receive Date: 20170425
  Receipt Date: 20180216
  Transmission Date: 20180508
  Serious: Yes (Hospitalization)
  Sender: FDA-Public Use
  Company Number: IT-VALIDUS PHARMACEUTICALS LLC-IT-2017VAL000636

PATIENT
  Age: 60 Year
  Sex: Female

DRUGS (3)
  1. FUROSEMIDE. [Suspect]
     Active Substance: FUROSEMIDE
     Indication: COMPUTERISED TOMOGRAM KIDNEY NORMAL
     Dosage: UNKNOWN;TOTAL
     Route: 042
  2. XENETIX [Suspect]
     Active Substance: IOBITRIDOL
     Indication: COMPUTERISED TOMOGRAM KIDNEY NORMAL
     Dosage: 115 ML, TOTAL
     Route: 042
  3. XENETIX [Suspect]
     Active Substance: IOBITRIDOL
     Dosage: UNK
     Route: 042
     Dates: start: 20170302

REACTIONS (1)
  - Presyncope [Unknown]

NARRATIVE: CASE EVENT DATE: 20170302
